FAERS Safety Report 9521669 (Version 17)
Quarter: 2018Q1

REPORT INFORMATION
  Report Type: Report from Study
  Country: CA (occurrence: CA)
  Receive Date: 20130913
  Receipt Date: 20180213
  Transmission Date: 20180509
  Serious: Yes (Hospitalization, Other)
  Sender: FDA-Public Use
  Company Number: PHHY2012CA066231

PATIENT
  Age: 79 Year
  Sex: Male

DRUGS (4)
  1. SANDOSTATIN LAR DEPOT [Suspect]
     Active Substance: OCTREOTIDE ACETATE
     Dosage: 40 MG, EVERY THREE WEEKS
     Route: 030
  2. SANDOSTATIN LAR DEPOT [Suspect]
     Active Substance: OCTREOTIDE ACETATE
     Indication: CARCINOID TUMOUR
     Dosage: 20 MG, ONCE A MONTH
     Route: 030
     Dates: start: 20120628
  3. SANDOSTATIN LAR DEPOT [Suspect]
     Active Substance: OCTREOTIDE ACETATE
     Dosage: 30 MG, ONCE A MONTH
     Route: 030
  4. SANDOSTATIN [Suspect]
     Active Substance: OCTREOTIDE ACETATE
     Indication: CARCINOID TUMOUR
     Dosage: 75 UG, TID X 2 WEEKS
     Route: 058
     Dates: start: 201206, end: 2012

REACTIONS (23)
  - Metastases to liver [Unknown]
  - Rhinorrhoea [Unknown]
  - Anxiety disorder [Unknown]
  - Hernia pain [Unknown]
  - Injection site pain [Not Recovered/Not Resolved]
  - Diarrhoea [Unknown]
  - Hepatic lesion [Unknown]
  - Weight increased [Unknown]
  - Heart rate decreased [Unknown]
  - Inappropriate schedule of drug administration [Unknown]
  - Chromaturia [Unknown]
  - Underdose [Unknown]
  - Abdominal hernia [Unknown]
  - Blood pressure systolic increased [Unknown]
  - Liver disorder [Unknown]
  - Ocular hyperaemia [Unknown]
  - Gastrointestinal tract irritation [Unknown]
  - Sneezing [Unknown]
  - Nausea [Unknown]
  - Vomiting [Unknown]
  - Fatigue [Unknown]
  - Malignant neoplasm progression [Unknown]
  - Blood pressure diastolic decreased [Unknown]

NARRATIVE: CASE EVENT DATE: 20120628
